FAERS Safety Report 19622187 (Version 9)
Quarter: 2022Q3

REPORT INFORMATION
  Report Type: Report from Study
  Country: US (occurrence: US)
  Receive Date: 20210728
  Receipt Date: 20220705
  Transmission Date: 20221026
  Serious: No
  Sender: FDA-Public Use
  Company Number: NVSC2021US167857

PATIENT
  Age: 51 Year
  Sex: Female

DRUGS (8)
  1. ENTRESTO [Suspect]
     Active Substance: SACUBITRIL\VALSARTAN
     Indication: Cardiac failure
     Dosage: 1 DOSAGE FORM, BID
     Route: 048
     Dates: start: 202107
  2. ENTRESTO [Suspect]
     Active Substance: SACUBITRIL\VALSARTAN
     Dosage: UNK UNK, BID
     Route: 065
     Dates: start: 202107
  3. HYDROXYCHLOROQUINE [Suspect]
     Active Substance: HYDROXYCHLOROQUINE
     Indication: Sjogren^s syndrome
     Dosage: UNK
     Route: 065
  4. CARVEDILOL [Suspect]
     Active Substance: CARVEDILOL
     Indication: Product used for unknown indication
     Dosage: 6.25 MG, BID
     Route: 065
  5. MELOXICAM [Suspect]
     Active Substance: MELOXICAM
     Indication: Product used for unknown indication
     Dosage: UNK
     Route: 065
  6. TORSEMIDE [Suspect]
     Active Substance: TORSEMIDE
     Indication: Product used for unknown indication
     Dosage: 10 MG, QD (TAKEN ON TUE,THU,SAT,SUN)
     Route: 065
  7. TORSEMIDE [Suspect]
     Active Substance: TORSEMIDE
     Dosage: 20 MG, QD (TAKEN ON MON, WED, FRI)
     Route: 065
  8. DULOXETINE [Concomitant]
     Active Substance: DULOXETINE
     Indication: Product used for unknown indication
     Dosage: UNK UNK, UNKNOWN
     Route: 065

REACTIONS (26)
  - Feeling cold [Unknown]
  - Weight fluctuation [Unknown]
  - Peripheral swelling [Recovering/Resolving]
  - Decreased appetite [Unknown]
  - Chest pain [Unknown]
  - Dyspnoea [Unknown]
  - Bone pain [Unknown]
  - Pigmentation disorder [Unknown]
  - Thirst [Unknown]
  - Vision blurred [Unknown]
  - Fluid retention [Unknown]
  - Memory impairment [Not Recovered/Not Resolved]
  - Abdominal pain upper [Unknown]
  - Throat clearing [Unknown]
  - Cardiac disorder [Unknown]
  - Hypoaesthesia [Unknown]
  - Balance disorder [Unknown]
  - Insomnia [Unknown]
  - Pollakiuria [Unknown]
  - Movement disorder [Unknown]
  - Cough [Unknown]
  - Fatigue [Not Recovered/Not Resolved]
  - Asthenia [Unknown]
  - Headache [Unknown]
  - Dizziness [Unknown]
  - Product dose omission in error [Unknown]

NARRATIVE: CASE EVENT DATE: 20220207
